FAERS Safety Report 18673003 (Version 1)
Quarter: 2020Q4

REPORT INFORMATION
  Report Type: Report from Study
  Country: US (occurrence: US)
  Receive Date: 20201229
  Receipt Date: 20201229
  Transmission Date: 20210114
  Serious: No
  Sender: FDA-Public Use
  Company Number: NVSC2020US338431

PATIENT
  Sex: Female

DRUGS (1)
  1. COSENTYX [Suspect]
     Active Substance: SECUKINUMAB
     Indication: ANKYLOSING SPONDYLITIS
     Dosage: 150 MG, Q4W (BENEATH THE SKIN, USUALLY VIA INJECTION)
     Route: 058

REACTIONS (8)
  - Gastritis [Unknown]
  - Acne [Unknown]
  - Constipation [Unknown]
  - Diarrhoea [Unknown]
  - Injection site bruising [Unknown]
  - Tremor [Unknown]
  - Nervousness [Unknown]
  - Injection site haemorrhage [Unknown]
